FAERS Safety Report 26046296 (Version 1)
Quarter: 2025Q4

REPORT INFORMATION
  Report Type: Report from Study
  Country: US (occurrence: US)
  Receive Date: 20251114
  Receipt Date: 20251114
  Transmission Date: 20260117
  Serious: Yes (Hospitalization, Other)
  Sender: EISAI
  Company Number: US-Eisai-EC-2025-196476

PATIENT
  Age: 61 Year
  Sex: Male

DRUGS (4)
  1. LENVIMA [Suspect]
     Active Substance: LENVATINIB
     Indication: Renal cancer
     Dosage: TYPICAL DOSE WHEN USED IN COMBO WITH KEYTRUDA IS 20 MG DAILY
     Route: 048
     Dates: start: 202509, end: 202509
  2. LENVIMA [Suspect]
     Active Substance: LENVATINIB
     Dosage: TYPICAL DOSE WHEN USED IN COMBO WITH KEYTRUDA IS 20 MG DAILY
     Route: 048
     Dates: start: 2025, end: 2025
  3. LENVIMA [Suspect]
     Active Substance: LENVATINIB
     Dosage: TYPICAL DOSE WHEN USED IN COMBO WITH KEYTRUDA IS 20 MG DAILY
     Route: 048
     Dates: start: 2025
  4. KEYTRUDA [Concomitant]
     Active Substance: PEMBROLIZUMAB

REACTIONS (3)
  - Pulmonary embolism [Unknown]
  - Encephalitis [Recovering/Resolving]
  - Muscle spasms [Unknown]

NARRATIVE: CASE EVENT DATE: 20250101
